FAERS Safety Report 24695295 (Version 1)
Quarter: 2024Q4

REPORT INFORMATION
  Report Type: Spontaneous
  Country: US (occurrence: None)
  Receive Date: 20241204
  Receipt Date: 20241204
  Transmission Date: 20250115
  Serious: Yes (Life-Threatening)
  Sender: Public
  Company Number: None

PATIENT
  Age: 61 Year
  Sex: Female
  Weight: 93.6 kg

DRUGS (1)
  1. LUMASON [Suspect]
     Active Substance: SULFUR HEXAFLUORIDE
     Indication: Echocardiogram
     Dates: start: 20241127

REACTIONS (7)
  - Hypoxia [None]
  - Altered state of consciousness [None]
  - Cardio-respiratory arrest [None]
  - Contrast media reaction [None]
  - Pulse abnormal [None]
  - Rash erythematous [None]
  - Anaphylactic reaction [None]

NARRATIVE: CASE EVENT DATE: 20241127
